FAERS Safety Report 10501682 (Version 3)
Quarter: 2014Q4

REPORT INFORMATION
  Report Type: Report from Study
  Country: MX (occurrence: MX)
  Receive Date: 20141007
  Receipt Date: 20141016
  Transmission Date: 20150528
  Serious: Yes (Hospitalization)
  Sender: FDA-Public Use
  Company Number: MX-INCYTE CORPORATION-2014IN002663

PATIENT
  Age: 59 Year
  Sex: Female
  Weight: 61.8 kg

DRUGS (22)
  1. CINARIZINA [Concomitant]
  2. FUROSEMIDE. [Concomitant]
     Active Substance: FUROSEMIDE
     Dosage: 20 MG, UNK
  3. CINARIZINA [Concomitant]
     Dosage: 75 MG, UNK
  4. KETOROLAC [Concomitant]
     Active Substance: KETOROLAC\KETOROLAC TROMETHAMINE
     Dosage: 10 MG, UNK
  5. ACE//PARACETAMOL [Concomitant]
     Dosage: UNK
  6. CINNARIZINE [Concomitant]
     Active Substance: CINNARIZINE
     Dosage: UNK
  7. SPIRONOLACTONE. [Concomitant]
     Active Substance: SPIRONOLACTONE
  8. INC424 [Suspect]
     Active Substance: RUXOLITINIB
     Indication: MYELOFIBROSIS
     Dosage: 25 MG, BID
     Route: 048
     Dates: start: 20131122, end: 20140822
  9. ENOXAPARIN [Concomitant]
     Active Substance: ENOXAPARIN
     Dosage: UNK
  10. TRAMADOL [Concomitant]
     Active Substance: TRAMADOL
     Dosage: 100 MG, QD
  11. BETAHISTINE HYDROCHLORIDE [Concomitant]
     Active Substance: BETAHISTINE HYDROCHLORIDE
     Dosage: UNK
  12. CLINDAMYCIN [Concomitant]
     Active Substance: CLINDAMYCIN\CLINDAMYCIN PHOSPHATE
     Dosage: 600 MG, UNK
  13. RANITIDINE [Concomitant]
     Active Substance: RANITIDINE\RANITIDINE HYDROCHLORIDE
     Dosage: 50 MG, UNK
  14. BETAHISTINE HYDROCHLORIDE [Concomitant]
     Active Substance: BETAHISTINE HYDROCHLORIDE
     Dosage: UNK
  15. TRAMADOL [Concomitant]
     Active Substance: TRAMADOL
     Dosage: 100 MG, QD
  16. FUROSEMIDE. [Concomitant]
     Active Substance: FUROSEMIDE
     Dosage: 20 MG, UNK
  17. MORPHINE [Concomitant]
     Active Substance: MORPHINE
     Dosage: UNK
  18. ALLOPURINOL. [Concomitant]
     Active Substance: ALLOPURINOL
     Dosage: UNK
  19. BETAHISTINE HYDROCHLORIDE [Concomitant]
     Active Substance: BETAHISTINE HYDROCHLORIDE
     Dosage: UNK
  20. KETOROLAC [Concomitant]
     Active Substance: KETOROLAC\KETOROLAC TROMETHAMINE
     Dosage: 10 MG, UNK
  21. CLONIXIN LYSIN [Concomitant]
     Dosage: UNK
  22. AMOXICILLIN CLAVULANIC ACID [Concomitant]
     Active Substance: AMOXICILLIN\CLAVULANIC ACID
     Dosage: UNK

REACTIONS (4)
  - Bone pain [Not Recovered/Not Resolved]
  - Cardiac failure [Not Recovered/Not Resolved]
  - Diplopia [Recovering/Resolving]
  - Pleural effusion [Recovering/Resolving]

NARRATIVE: CASE EVENT DATE: 20140825
